FAERS Safety Report 5744863-6 (Version None)
Quarter: 2008Q2

REPORT INFORMATION
  Report Type: 
  Country: None (occurrence: None)
  Receive Date: 20080516
  Receipt Date: 20080506
  Transmission Date: 20081010
  Serious: Yes (Hospitalization)
  Sender: FDA-Public Use
  Company Number: 041-21880-08040187

PATIENT
  Age: 69 Year
  Sex: Male

DRUGS (12)
  1. REVLIMID [Suspect]
     Indication: MULTIPLE MYELOMA
     Dosage: 25 MG, 1 IN 1 D, ORAL
     Route: 048
     Dates: start: 20080318, end: 20080404
  2. DEXAMETHASONE TAB [Concomitant]
  3. MYCOSTATIN [Concomitant]
  4. COMPLEX (BECOSYM FORTE) [Concomitant]
  5. AMYTRIPTILLIN (AMITRIPTYLINE) [Concomitant]
  6. BACTRIM [Concomitant]
  7. FAMOTIDINE [Concomitant]
  8. ALLOPURINOL [Concomitant]
  9. ENOXAPARIN SODIUM [Concomitant]
  10. XATRAL (ALFUZOSIN) [Concomitant]
  11. FOLIC ACID [Concomitant]
  12. ACETAMINOPHEN [Concomitant]

REACTIONS (9)
  - DYSPNOEA [None]
  - HAEMATOCRIT DECREASED [None]
  - HAEMOGLOBIN DECREASED [None]
  - LOWER RESPIRATORY TRACT INFECTION [None]
  - LUNG CONSOLIDATION [None]
  - PLATELET COUNT DECREASED [None]
  - PRODUCTIVE COUGH [None]
  - PYREXIA [None]
  - WHITE BLOOD CELL COUNT DECREASED [None]
